FAERS Safety Report 10014551 (Version 1)
Quarter: 2014Q1

REPORT INFORMATION
  Report Type: Spontaneous
  Country: US (occurrence: US)
  Receive Date: 20140317
  Receipt Date: 20140317
  Transmission Date: 20141002
  Serious: Yes (Hospitalization)
  Sender: FDA-Public Use
  Company Number: US-DAIICHI SANKYO EUROPE GMBH-DSU-2014-100585

PATIENT
  Sex: 0

DRUGS (2)
  1. BENICAR [Suspect]
     Indication: HYPERTENSION
     Dosage: 5 MG, QD
     Route: 048
     Dates: start: 2013
  2. BENADRYL                           /00000402/ [Concomitant]
     Indication: HYPERSENSITIVITY
     Dosage: UNK

REACTIONS (2)
  - Platelet count decreased [Unknown]
  - Arthralgia [Unknown]
